FAERS Safety Report 9285627 (Version 1)
Quarter: 2013Q2

REPORT INFORMATION
  Report Type: Spontaneous
  Country: FR (occurrence: FR)
  Receive Date: 20130513
  Receipt Date: 20130513
  Transmission Date: 20140414
  Serious: Yes (Other)
  Sender: FDA-Public Use
  Company Number: FR-SANOFI-AVENTIS-2013SA045156

PATIENT
  Age: 38 Year
  Sex: Male

DRUGS (1)
  1. RIFINAH [Suspect]
     Indication: TUBERCULOSIS
     Route: 048
     Dates: start: 20130126, end: 20130323

REACTIONS (1)
  - Hepatocellular injury [Recovered/Resolved]
